FAERS Safety Report 15807659 (Version 3)
Quarter: 2019Q2

REPORT INFORMATION
  Report Type: Spontaneous
  Country: DE (occurrence: DE)
  Receive Date: 20190110
  Receipt Date: 20190623
  Transmission Date: 20190711
  Serious: Yes (Life-Threatening, Hospitalization, Other)
  Sender: FDA-Public Use
  Company Number: PHHY2019DE002526

PATIENT
  Age: 73 Year
  Sex: Female
  Weight: 62 kg

DRUGS (6)
  1. PANTOPRAZOL [Concomitant]
     Active Substance: PANTOPRAZOLE SODIUM
     Indication: PRODUCT USED FOR UNKNOWN INDICATION
     Dosage: 40 MG, QD (1-0-0)
     Route: 065
  2. VOTRIENT [Suspect]
     Active Substance: PAZOPANIB HYDROCHLORIDE
     Indication: LEIOMYOSARCOMA
     Dosage: 200 MG, BID (2-0-2)
     Route: 048
     Dates: start: 20180912, end: 20181011
  3. VOTRIENT [Suspect]
     Active Substance: PAZOPANIB HYDROCHLORIDE
     Dosage: 400 MG, QD
     Route: 048
     Dates: start: 20181109
  4. NOVALGIN [Concomitant]
     Indication: PAIN
     Dosage: 100 ML, UNK
     Route: 048
  5. MOVICOL [Concomitant]
     Active Substance: POLYETHYLENE GLYCOL 3350\POTASSIUM CHLORIDE\SODIUM BICARBONATE\SODIUM CHLORIDE
     Indication: PRODUCT USED FOR UNKNOWN INDICATION
     Dosage: 1 TO 5 BAGS/ DAY, PRN ( AS NEEDED)
     Route: 065
  6. DIPHENHYDRAMINE. [Concomitant]
     Active Substance: DIPHENHYDRAMINE
     Indication: NAUSEA
     Dosage: UNK
     Route: 048

REACTIONS (23)
  - Partial seizures [Unknown]
  - Dizziness [Recovered/Resolved]
  - Hypertension [Recovered/Resolved]
  - Nausea [Unknown]
  - Metastases to lymph nodes [Unknown]
  - Muscle spasms [Recovered/Resolved]
  - Dysarthria [Recovered/Resolved]
  - Tremor [Recovered/Resolved]
  - Seizure [Recovered/Resolved]
  - Vertigo [Unknown]
  - Somnolence [Unknown]
  - Liver disorder [Recovered/Resolved]
  - Pulmonary mass [Not Recovered/Not Resolved]
  - Urinary tract infection [Recovered/Resolved]
  - Leiomyosarcoma [Unknown]
  - Cardiovascular disorder [Unknown]
  - Dizziness [Unknown]
  - Speech disorder [Recovered/Resolved]
  - Liver disorder [Recovering/Resolving]
  - Malignant neoplasm progression [Not Recovered/Not Resolved]
  - Hypertensive urgency [Unknown]
  - Paresis [Recovering/Resolving]
  - Myoclonus [Recovered/Resolved]

NARRATIVE: CASE EVENT DATE: 2018
